FAERS Safety Report 11440738 (Version 1)
Quarter: 2015Q3

REPORT INFORMATION
  Report Type: Spontaneous
  Country: US (occurrence: None)
  Receive Date: 20150831
  Receipt Date: 20150831
  Transmission Date: 20151125
  Serious: No
  Sender: FDA-Public Use
  Company Number: None

PATIENT
  Age: 7 Year
  Sex: Female

DRUGS (2)
  1. OXYBUTYNIN CHLORIDE SYRUP [Suspect]
     Active Substance: OXYBUTYNIN CHLORIDE
     Dosage: AT LEAST 2 YEARS
     Route: 048
  2. SULFAMETHOXAZOLE/TRIMETHOPRIM [Concomitant]
     Active Substance: SULFAMETHOXAZOLE\TRIMETHOPRIM

REACTIONS (1)
  - Mydriasis [None]

NARRATIVE: CASE EVENT DATE: 20150828
